FAERS Safety Report 24915007 (Version 1)
Quarter: 2025Q1

REPORT INFORMATION
  Report Type: Report from Study
  Country: US (occurrence: US)
  Receive Date: 20250203
  Receipt Date: 20250203
  Transmission Date: 20250408
  Serious: Yes (Hospitalization)
  Sender: BAUSCH AND LOMB
  Company Number: US-BAUSCHBL-2025BNL001539

PATIENT
  Age: 70 Year
  Sex: Female

DRUGS (1)
  1. MIEBO [Suspect]
     Active Substance: PERFLUOROHEXYLOCTANE
     Indication: Product used for unknown indication
     Dosage: ONE DROP BOTH EYES FOUR TIMES DAILY
     Route: 047

REACTIONS (2)
  - Pruritus [Unknown]
  - Vision blurred [Unknown]
